FAERS Safety Report 7706495-X (Version None)
Quarter: 2011Q3

REPORT INFORMATION
  Report Type: 
  Country: None (occurrence: None)
  Receive Date: 20110824
  Receipt Date: 20110819
  Transmission Date: 20111222
  Serious: Yes (Hospitalization, Other)
  Sender: FDA-Public Use
  Company Number: IT-PFIZER INC-2011180791

PATIENT
  Age: 51 Year
  Sex: Male
  Weight: 94 kg

DRUGS (4)
  1. MEDROL [Concomitant]
     Dosage: 4 MG
     Route: 048
  2. HUMIRA [Suspect]
     Indication: PSORIATIC ARTHROPATHY
     Dosage: 80 MG, MONTHLY
     Route: 058
     Dates: start: 20050901
  3. SULFASALAZINE [Suspect]
     Indication: PSORIATIC ARTHROPATHY
     Dosage: 2 MG, 1X/DAY
     Route: 048
     Dates: start: 20071101
  4. ARCOXIA [Concomitant]
     Dosage: 90 MG
     Route: 048
     Dates: start: 20050501, end: 20110801

REACTIONS (2)
  - MALIGNANT MELANOMA [None]
  - INJURY [None]
